FAERS Safety Report 20096484 (Version 1)
Quarter: 2021Q4

REPORT INFORMATION
  Report Type: Spontaneous
  Country: US (occurrence: None)
  Receive Date: 20211119
  Receipt Date: 20211119
  Transmission Date: 20220303
  Serious: Yes (Hospitalization)
  Sender: FDA-Public Use
  Company Number: None

PATIENT
  Age: 64 Year
  Sex: Female

DRUGS (22)
  1. DALFAMPRIDINE [Suspect]
     Active Substance: DALFAMPRIDINE
     Indication: Multiple sclerosis
     Dosage: FREQUENCY : TWICE A DAY;?
     Route: 048
     Dates: start: 20201222
  2. AMBIEN [Concomitant]
     Active Substance: ZOLPIDEM TARTRATE
  3. AMITRYPTLYN [Concomitant]
  4. AMMONIUM LAC [Concomitant]
  5. AMPYRA [Concomitant]
     Active Substance: DALFAMPRIDINE
  6. AUBAGIO [Concomitant]
     Active Substance: TERIFLUNOMIDE
  7. BACLOFEN [Concomitant]
     Active Substance: BACLOFEN
  8. BETHANECHOL [Concomitant]
     Active Substance: BETHANECHOL
  9. BOTOX [Concomitant]
     Active Substance: ONABOTULINUMTOXINA
  10. BROVANA [Concomitant]
     Active Substance: ARFORMOTEROL TARTRATE
  11. BUDESONIDE [Concomitant]
     Active Substance: BUDESONIDE
  12. CARDIZEM [Concomitant]
     Active Substance: DILTIAZEM HYDROCHLORIDE
  13. CYANOCOBALAMIN [Concomitant]
     Active Substance: CYANOCOBALAMIN
  14. EZETIMBEE [Concomitant]
  15. GLIPIZIDE [Concomitant]
     Active Substance: GLIPIZIDE
  16. HUMALOG [Concomitant]
     Active Substance: INSULIN LISPRO
  17. INSULIN NOS [Concomitant]
     Active Substance: INSULIN NOS
  18. IRBESARTAN [Concomitant]
     Active Substance: IRBESARTAN
  19. LEXAPRO [Concomitant]
     Active Substance: ESCITALOPRAM OXALATE
  20. LIDOCAINE [Concomitant]
     Active Substance: LIDOCAINE
  21. LIPITOR [Concomitant]
     Active Substance: ATORVASTATIN CALCIUM
  22. LYRICA [Concomitant]
     Active Substance: PREGABALIN

REACTIONS (1)
  - Multiple sclerosis relapse [None]

NARRATIVE: CASE EVENT DATE: 20211014
